FAERS Safety Report 7956696-0 (Version None)
Quarter: 2011Q4

REPORT INFORMATION
  Report Type: 
  Country: None (occurrence: None)
  Receive Date: 20111130
  Receipt Date: 20111114
  Transmission Date: 20120403
  Serious: Yes (Hospitalization)
  Sender: FDA-Public Use
  Company Number: COL_10317_2011

PATIENT
  Sex: Male
  Weight: 34.4734 kg

DRUGS (3)
  1. CHLORHEXIDINE GLUCONATE [Suspect]
     Indication: GINGIVITIS
     Dosage: 1 ML QD, 1 CAP FULL ORAL
     Route: 048
     Dates: start: 20111105, end: 20111106
  2. CHLORHEXIDINE GLUCONATE [Suspect]
     Indication: POSTOPERATIVE WOUND INFECTION
     Dosage: 1 ML QD, 1 CAP FULL ORAL
     Route: 048
     Dates: start: 20111105, end: 20111106
  3. CHLORHEXIDINE GLUCONATE [Suspect]
     Indication: MUCOSAL INFLAMMATION
     Dosage: 1 ML QD, 1 CAP FULL ORAL
     Route: 048
     Dates: start: 20111105, end: 20111106

REACTIONS (8)
  - THROAT TIGHTNESS [None]
  - HAEMORRHAGE [None]
  - ABSCESS [None]
  - ORAL DISORDER [None]
  - DYSPHAGIA [None]
  - APHASIA [None]
  - PAIN [None]
  - SENSATION OF PRESSURE [None]
